FAERS Safety Report 22355158 (Version 1)
Quarter: 2023Q2

REPORT INFORMATION
  Report Type: Spontaneous
  Country: ID (occurrence: ID)
  Receive Date: 20230523
  Receipt Date: 20230523
  Transmission Date: 20230722
  Serious: Yes (Other)
  Sender: FDA-Public Use
  Company Number: ID-IGSA-BIG0023427

PATIENT
  Age: 60 Year
  Sex: Male

DRUGS (11)
  1. ALBUMIN (HUMAN) [Suspect]
     Active Substance: ALBUMIN HUMAN
     Indication: Plasmapheresis
     Dosage: 2500 MILLILITER, SINGLE
     Route: 042
  2. ALBUMIN (HUMAN) [Suspect]
     Active Substance: ALBUMIN HUMAN
     Indication: Tetanus
     Dosage: 2500 MILLILITER, SINGLE
     Route: 042
  3. SODIUM CHLORIDE [Concomitant]
     Active Substance: SODIUM CHLORIDE
     Indication: Plasmapheresis
     Dosage: 500 MILLILITER, SINGLE
     Route: 042
  4. SODIUM CHLORIDE [Concomitant]
     Active Substance: SODIUM CHLORIDE
     Indication: Tetanus
     Dosage: 500 MILLILITER, SINGLE
     Route: 042
  5. AMIKACIN [Concomitant]
     Active Substance: AMIKACIN
     Indication: Tetanus
     Dosage: 1 GRAM, QID
     Route: 042
  6. ACETAMINOPHEN [Concomitant]
     Active Substance: ACETAMINOPHEN
     Indication: Tetanus
     Dosage: 1 GRAM, TID
     Route: 041
  7. PROCAINE PENICILLIN [PROCAINE BENZYLPENICILLIN] [Concomitant]
     Indication: Tetanus
     Dosage: 1.2 GRAM, BID
     Route: 042
  8. DIAZEPAM [Concomitant]
     Active Substance: DIAZEPAM
     Indication: Tetanus
     Dosage: 5 MILLIGRAM, TID
     Route: 048
  9. DIAZEPAM [Concomitant]
     Active Substance: DIAZEPAM
     Dosage: 5 MILLIGRAM, TID
     Route: 042
  10. OMEPRAZOLE [Concomitant]
     Active Substance: OMEPRAZOLE
     Indication: Tetanus
     Dosage: 40 MILLIGRAM, BID
     Route: 042
  11. METRONIDAZOLE [Concomitant]
     Active Substance: METRONIDAZOLE
     Indication: Tetanus
     Dosage: 500 MILLIGRAM, TID
     Route: 041

REACTIONS (1)
  - Hypokalaemia [Unknown]
